FAERS Safety Report 6931618-X (Version None)
Quarter: 2010Q3

REPORT INFORMATION
  Report Type: 
  Country: None (occurrence: None)
  Receive Date: 20100819
  Receipt Date: 20100809
  Transmission Date: 20110219
  Serious: Yes (Hospitalization)
  Sender: FDA-Public Use
  Company Number: FR-SANOFI-AVENTIS-2010SA047063

PATIENT
  Age: 22 Year
  Sex: Male
  Weight: 60 kg

DRUGS (2)
  1. RIFATER [Suspect]
     Route: 048
     Dates: start: 20100401, end: 20100601
  2. MYAMBUTOL [Concomitant]
     Route: 048
     Dates: end: 20100601

REACTIONS (2)
  - HEPATITIS B [None]
  - HEPATOCELLULAR INJURY [None]
